FAERS Safety Report 9362745 (Version 1)
Quarter: 2013Q2

REPORT INFORMATION
  Report Type: Spontaneous
  Country: US (occurrence: US)
  Receive Date: 20130623
  Receipt Date: 20130623
  Transmission Date: 20140414
  Serious: No
  Sender: FDA-Public Use
  Company Number: US-009507513-1306USA007562

PATIENT
  Sex: Female

DRUGS (1)
  1. AZASITE [Suspect]
     Indication: ANTIBIOTIC PROPHYLAXIS
     Dosage: ONE DROP IN THE RIGHT EYE ONCE DAILY
     Route: 047

REACTIONS (6)
  - Drug dose omission [Unknown]
  - Product quality issue [Unknown]
  - Drug prescribing error [Unknown]
  - Inappropriate schedule of drug administration [Unknown]
  - Off label use [Unknown]
  - No adverse event [Unknown]
